FAERS Safety Report 17500893 (Version 1)
Quarter: 2020Q1

REPORT INFORMATION
  Report Type: Spontaneous
  Country: US (occurrence: US)
  Receive Date: 20200224
  Receipt Date: 20200224
  Transmission Date: 20200409
  Serious: No
  Sender: FDA-Public Use
  Company Number: None

PATIENT
  Age: 59 Year
  Sex: Male
  Weight: 72.57 kg

DRUGS (2)
  1. PREGABALIN 100 [Suspect]
     Active Substance: PREGABALIN
     Route: 048
  2. LYRICA 100M [Concomitant]

REACTIONS (1)
  - Product substitution issue [None]

NARRATIVE: CASE EVENT DATE: 201912
